FAERS Safety Report 4517261-0 (Version None)
Quarter: 2004Q4

REPORT INFORMATION
  Report Type: 
  Country: None (occurrence: None)
  Receive Date: 20040927
  Receipt Date: 20040823
  Transmission Date: 20050328
  Serious: No
  Sender: FDA-Public Use
  Company Number: TAP2004Q01043

PATIENT
  Age: 57 Year
  Sex: Female
  Weight: 103 kg

DRUGS (10)
  1. PREVACID IV [Suspect]
     Indication: GASTROINTESTINAL HAEMORRHAGE
     Dosage: 30 MG, 1 IN 1 D, INTRAVENOUS
     Route: 042
     Dates: start: 20040815, end: 20040820
  2. PREVACID [Suspect]
     Indication: GASTROINTESTINAL HAEMORRHAGE
     Dosage: 30 MG, ONCE, PER ORAL
     Route: 048
     Dates: start: 20040821, end: 20040821
  3. KEFLEX [Concomitant]
  4. SUCRALFATE [Concomitant]
  5. LOPRESSOR [Concomitant]
  6. TOPROL (METOPROLOL SUCCINATE) [Concomitant]
  7. SINEMET [Concomitant]
  8. LEXAPRO [Concomitant]
  9. GLUCOVANCE (GLIBOMET) [Concomitant]
  10. PHENTERMINE [Concomitant]

REACTIONS (1)
  - THROMBOCYTOPENIA [None]
